FAERS Safety Report 14592806 (Version 2)
Quarter: 2018Q2

REPORT INFORMATION
  Report Type: Report from Study
  Country: JP (occurrence: JP)
  Receive Date: 20180302
  Receipt Date: 20180402
  Transmission Date: 20180711
  Serious: No
  Sender: FDA-Public Use
  Company Number: JP-PFIZER INC-2018084118

PATIENT
  Age: 77 Year
  Sex: Female
  Weight: 51.2 kg

DRUGS (9)
  1. AMLODIPINE [Concomitant]
     Active Substance: AMLODIPINE BESYLATE
     Route: 048
  2. XELJANZ [Suspect]
     Active Substance: TOFACITINIB CITRATE
     Indication: RHEUMATOID ARTHRITIS
     Dosage: 5 MG, 2X/DAY
     Route: 048
     Dates: start: 20170929, end: 20171113
  3. EBASTEL [Concomitant]
     Active Substance: EBASTINE
     Route: 048
  4. EXCELASE [Concomitant]
     Active Substance: PANCRELIPASE
     Route: 048
  5. REBAMIPIDE [Concomitant]
     Active Substance: REBAMIPIDE
     Route: 048
  6. LOTRIGA [Concomitant]
     Active Substance: OMEGA-3-ACID ETHYL ESTERS
     Route: 048
  7. MAGNESIUM OXIDE. [Concomitant]
     Active Substance: MAGNESIUM OXIDE
     Route: 048
  8. VALSARTAN. [Concomitant]
     Active Substance: VALSARTAN
     Route: 048
  9. LANSOPRAZOLE. [Concomitant]
     Active Substance: LANSOPRAZOLE
     Route: 048

REACTIONS (1)
  - No adverse event [Unknown]
